FAERS Safety Report 18954854 (Version 1)
Quarter: 2021Q1

REPORT INFORMATION
  Report Type: Spontaneous
  Country: LB (occurrence: LB)
  Receive Date: 20210301
  Receipt Date: 20210301
  Transmission Date: 20210420
  Serious: Yes (Hospitalization, Other)
  Sender: FDA-Public Use
  Company Number: LB-VISTAPHARM, INC.-VER202102-000813

PATIENT
  Age: 28 Year
  Sex: Female

DRUGS (1)
  1. HYDROCODONE AND ACETAMINOPHEN [Suspect]
     Active Substance: ACETAMINOPHEN\HYDROCODONE
     Indication: HEADACHE
     Dosage: UNKNOWN

REACTIONS (2)
  - Renal ischaemia [Recovering/Resolving]
  - Renal papillary necrosis [Recovering/Resolving]
